FAERS Safety Report 24699298 (Version 1)
Quarter: 2024Q4

REPORT INFORMATION
  Report Type: Spontaneous
  Country: DE (occurrence: DE)
  Receive Date: 20241205
  Receipt Date: 20241205
  Transmission Date: 20250114
  Serious: Yes (Other)
  Sender: TEVA
  Company Number: DE-TEVA-VS-3270386

PATIENT
  Age: 36 Year
  Sex: Female

DRUGS (9)
  1. BUPRENORPHINE [Suspect]
     Active Substance: BUPRENORPHINE
     Indication: Drug abuse
     Route: 048
  2. CODEINE [Suspect]
     Active Substance: CODEINE
     Indication: Drug abuse
     Route: 048
  3. MORPHINE [Suspect]
     Active Substance: MORPHINE
     Indication: Drug abuse
     Route: 048
  4. FENTANYL [Suspect]
     Active Substance: FENTANYL
     Indication: Drug abuse
     Route: 048
  5. PREGABALIN [Suspect]
     Active Substance: PREGABALIN
     Indication: Drug abuse
     Route: 048
  6. ZOPICLONE [Suspect]
     Active Substance: ZOPICLONE
     Indication: Drug abuse
     Route: 048
  7. TENAMFETAMINE [Suspect]
     Active Substance: TENAMFETAMINE
     Indication: Drug abuse
     Route: 048
  8. CLONAZEPAM [Suspect]
     Active Substance: CLONAZEPAM
     Indication: Drug abuse
     Route: 048
  9. MIDOMAFETAMINE [Suspect]
     Active Substance: MIDOMAFETAMINE
     Indication: Drug abuse
     Route: 048

REACTIONS (2)
  - Drug abuse [Unknown]
  - Aggression [Unknown]
